FAERS Safety Report 7625278-2 (Version None)
Quarter: 2011Q3

REPORT INFORMATION
  Report Type: 
  Country: None (occurrence: None)
  Receive Date: 20110713
  Receipt Date: 20110628
  Transmission Date: 20111222
  Serious: Yes (Hospitalization, Other)
  Sender: FDA-Public Use
  Company Number: AUR-APL-2011-03575

PATIENT
  Age: 68 Year
  Sex: Female

DRUGS (9)
  1. CRESTOR [Concomitant]
  2. TERBINAFINE HCL [Suspect]
     Indication: PRODUCT USED FOR UNKNOWN INDICATION
     Dosage: 1 DOSAGE FORMS (1 DOSAGE FORMS, 1 IN 1 D)
     Dates: start: 20110418, end: 20110513
  3. EBASTINE [Concomitant]
  4. LANSOPRAZOLE [Concomitant]
  5. METFORMIN HCL [Concomitant]
  6. TERBINAFINE HCL [Suspect]
     Indication: PRODUCT USED FOR UNKNOWN INDICATION
     Dosage: 1 DOSAGE FORMS (1 DOSAGE FORMS, 1 IN 1 D)
     Dates: start: 20110514, end: 20110525
  7. LORAZEPAM [Concomitant]
  8. GAVISCON [Concomitant]
  9. LEVOTHYROXINE SODIUM [Concomitant]

REACTIONS (3)
  - TOXIC SKIN ERUPTION [None]
  - DRUG HYPERSENSITIVITY [None]
  - PRODUCT SUBSTITUTION ISSUE [None]
